FAERS Safety Report 13833816 (Version 2)
Quarter: 2017Q3

REPORT INFORMATION
  Report Type: Spontaneous
  Country: IT (occurrence: IT)
  Receive Date: 20170804
  Receipt Date: 20170830
  Transmission Date: 20171127
  Serious: Yes (Other)
  Sender: FDA-Public Use
  Company Number: IT-KRKA, D.D., NOVO MESTO-2024168

PATIENT
  Age: 67 Year
  Sex: Male

DRUGS (10)
  1. LANSOPRAZOLE GENERIC [Suspect]
     Active Substance: LANSOPRAZOLE
     Route: 048
  2. KANRENOL [Suspect]
     Active Substance: CANRENOATE POTASSIUM
  3. FUROSEMIDE. [Suspect]
     Active Substance: FUROSEMIDE
  4. ALLOPURINOL. [Suspect]
     Active Substance: ALLOPURINOL
  5. BISOPROLOL FUMARATE. [Suspect]
     Active Substance: BISOPROLOL FUMARATE
  6. CARDIOASPIRINA TABLETAS CON CUBIERTA ENTERICA [Suspect]
     Active Substance: 5-BROMO-2-ACETYLSALICYLIC ACID
  7. BRILIQUE [Suspect]
     Active Substance: TICAGRELOR
  8. TORVAST [Suspect]
     Active Substance: ATORVASTATIN
  9. AMIODARONE HYDROCHLORIDE. [Suspect]
     Active Substance: AMIODARONE HYDROCHLORIDE
  10. TRIATEC [Suspect]
     Active Substance: RAMIPRIL

REACTIONS (6)
  - Myocardial infarction [Unknown]
  - Bundle branch block [Unknown]
  - Ventricular extrasystoles [Unknown]
  - Bradycardia [Unknown]
  - Supraventricular extrasystoles [Unknown]
  - Pulmonary oedema [Unknown]
